FAERS Safety Report 24667596 (Version 1)
Quarter: 2024Q4

REPORT INFORMATION
  Report Type: Report from Study
  Country: DE (occurrence: DE)
  Receive Date: 20241126
  Receipt Date: 20241126
  Transmission Date: 20250114
  Serious: Yes (Hospitalization)
  Sender: ABBVIE
  Company Number: DE-ABBVIE-6020389

PATIENT
  Age: 60 Year
  Sex: Female

DRUGS (1)
  1. SKYRIZI [Suspect]
     Active Substance: RISANKIZUMAB-RZAA
     Indication: Psoriasis
     Dosage: LAST INJECTION ON 15 OCT 2024
     Route: 058
     Dates: start: 202301

REACTIONS (3)
  - Pneumonia [Recovered/Resolved]
  - Rib fracture [Unknown]
  - Oxygen therapy [Recovered/Resolved]

NARRATIVE: CASE EVENT DATE: 20240101
